FAERS Safety Report 10420887 (Version 1)
Quarter: 2014Q3

REPORT INFORMATION
  Report Type: Spontaneous
  Country: CA (occurrence: None)
  Receive Date: 20140829
  Receipt Date: 20140829
  Transmission Date: 20150326
  Serious: Yes (Hospitalization)
  Sender: FDA-Public Use
  Company Number: None

PATIENT
  Age: 2 Year
  Sex: Male
  Weight: 9.8 kg

DRUGS (8)
  1. THIOTEPA. [Suspect]
     Active Substance: THIOTEPA
  2. CYCLOPHOSPHAMIDE. [Suspect]
     Active Substance: CYCLOPHOSPHAMIDE
  3. ETOPOSIDE (VP-16) [Suspect]
     Active Substance: ETOPOSIDE
  4. MESNA. [Suspect]
     Active Substance: MESNA
  5. CARBOPLATIN. [Suspect]
     Active Substance: CARBOPLATIN
  6. CISPLATIN. [Suspect]
     Active Substance: CISPLATIN
  7. G-CSF (FILGRASTIM, AMGEN) [Suspect]
     Active Substance: FILGRASTIM
  8. VINCRISTINE SULFATE. [Suspect]
     Active Substance: VINCRISTINE SULFATE

REACTIONS (5)
  - Pseudomembranous colitis [None]
  - Hypertension [None]
  - Febrile neutropenia [None]
  - Sepsis syndrome [None]
  - Dyspnoea [None]

NARRATIVE: CASE EVENT DATE: 20140820
